FAERS Safety Report 25902976 (Version 1)
Quarter: 2025Q4

REPORT INFORMATION
  Report Type: Spontaneous
  Country: EU (occurrence: EU)
  Receive Date: 20251009
  Receipt Date: 20251009
  Transmission Date: 20260118
  Serious: Yes (Other)
  Sender: BAUSCH AND LOMB
  Company Number: EU-BAUSCH-BH-2025-018412

PATIENT
  Sex: Female
  Weight: 55 kg

DRUGS (13)
  1. DEXAMETHASONE [Suspect]
     Active Substance: DEXAMETHASONE
     Indication: Plasma cell myeloma
     Route: 065
  2. DEXAMETHASONE [Suspect]
     Active Substance: DEXAMETHASONE
     Indication: Plasmacytoma
     Route: 065
  3. DEXAMETHASONE [Suspect]
     Active Substance: DEXAMETHASONE
     Route: 065
  4. BORTEZOMIB [Suspect]
     Active Substance: BORTEZOMIB
     Indication: Plasma cell myeloma
     Route: 065
  5. BORTEZOMIB [Suspect]
     Active Substance: BORTEZOMIB
     Indication: Plasmacytoma
  6. TOLODODEKIN ALFA [Suspect]
     Active Substance: TOLODODEKIN ALFA
     Indication: Plasma cell myeloma
     Dosage: THERAPY WAS GIVEN IN 28-DAY CYCLES
     Route: 058
  7. TOLODODEKIN ALFA [Suspect]
     Active Substance: TOLODODEKIN ALFA
     Indication: Plasmacytoma
     Route: 065
  8. VENETOCLAX [Suspect]
     Active Substance: VENETOCLAX
     Indication: Plasma cell myeloma
     Dosage: ON DAY 4-6, THERAPY WAS GIVEN IN 28-DAY CYCLES
     Route: 048
  9. VENETOCLAX [Suspect]
     Active Substance: VENETOCLAX
     Indication: Plasmacytoma
     Dosage: THEREAFTER, THERAPY WAS GIVEN IN 28-DAY CYCLES
     Route: 048
  10. VENETOCLAX [Suspect]
     Active Substance: VENETOCLAX
     Dosage: ON DAY 1-3, THERAPY WAS GIVEN IN 28-DAY CYCLES
     Route: 048
  11. RITUXIMAB [Suspect]
     Active Substance: RITUXIMAB
     Indication: Castleman^s disease
     Route: 065
  12. LENALIDOMIDE [Concomitant]
     Active Substance: LENALIDOMIDE
     Indication: Product used for unknown indication
     Dates: end: 2021
  13. BENDAMUSTINE [Concomitant]
     Active Substance: BENDAMUSTINE
     Indication: Product used for unknown indication
     Dates: end: 2021

REACTIONS (6)
  - Acute kidney injury [Unknown]
  - Ascites [Recovering/Resolving]
  - Peritonitis bacterial [Recovering/Resolving]
  - Therapy partial responder [Unknown]
  - Pleural effusion [Unknown]
  - Oedema [Unknown]
